FAERS Safety Report 8043436-2 (Version None)
Quarter: 2012Q1

REPORT INFORMATION
  Report Type: 
  Country: None (occurrence: None)
  Receive Date: 20120112
  Receipt Date: 20120104
  Transmission Date: 20120608
  Serious: Yes (Other)
  Sender: FDA-Public Use
  Company Number: US-TEVA-2011005692

PATIENT
  Sex: Female
  Weight: 52.664 kg

DRUGS (1)
  1. TREANDA [Suspect]
     Route: 042
     Dates: start: 20101228, end: 20110126

REACTIONS (1)
  - PANCYTOPENIA [None]
